FAERS Safety Report 14740708 (Version 4)
Quarter: 2018Q2

REPORT INFORMATION
  Report Type: Spontaneous
  Country: ES (occurrence: ES)
  Receive Date: 20180410
  Receipt Date: 20180503
  Transmission Date: 20180711
  Serious: Yes (Life-Threatening, Hospitalization, Other)
  Sender: FDA-Public Use
  Company Number: ES-ELI_LILLY_AND_COMPANY-ES201804001383

PATIENT
  Age: 75 Year
  Sex: Female

DRUGS (15)
  1. LEVOSULPIRIDE [Suspect]
     Active Substance: LEVOSULPIRIDE
     Indication: MAJOR DEPRESSION
     Dosage: 25 MG, UNKNOWN
     Route: 065
  2. ENALAPRIL [Suspect]
     Active Substance: ENALAPRIL
     Indication: HYPERTENSION
     Dosage: UNK UNK, UNKNOWN
     Route: 065
  3. OMEPRAZOLE. [Concomitant]
     Active Substance: OMEPRAZOLE
     Indication: PRODUCT USED FOR UNKNOWN INDICATION
     Dosage: UNK UNK, UNKNOWN
     Route: 065
  4. DULOXETINE HYDROCHLORIDE. [Suspect]
     Active Substance: DULOXETINE HYDROCHLORIDE
     Indication: MAJOR DEPRESSION
     Dosage: 60 MG, DAILY
     Route: 065
     Dates: start: 201506
  5. CLOMIPRAMINE [Suspect]
     Active Substance: CLOMIPRAMINE
     Indication: MAJOR DEPRESSION
     Dosage: 50 MG, UNKNOWN
     Route: 065
  6. DILTIAZEM. [Concomitant]
     Active Substance: DILTIAZEM
     Indication: HYPERTENSION
     Dosage: UNK UNK, UNKNOWN
     Route: 065
  7. EZETIMIBE. [Concomitant]
     Active Substance: EZETIMIBE
     Indication: DYSLIPIDAEMIA
     Dosage: UNK UNK, UNKNOWN
     Route: 065
  8. HYDROCHLOROTHIAZIDE. [Suspect]
     Active Substance: HYDROCHLOROTHIAZIDE
     Indication: HYPERTENSION
     Dosage: UNK UNK, UNKNOWN
     Route: 065
  9. ACETYLSALICYLIC ACID [Concomitant]
     Active Substance: ASPIRIN
     Indication: PRODUCT USED FOR UNKNOWN INDICATION
     Dosage: UNK UNK, UNKNOWN
     Route: 065
  10. PARACETAMOL [Concomitant]
     Active Substance: ACETAMINOPHEN
     Indication: HYPERTENSION
     Dosage: UNK UNK, UNKNOWN
     Route: 065
  11. METFORMIN [Concomitant]
     Active Substance: METFORMIN HYDROCHLORIDE
     Indication: TYPE 2 DIABETES MELLITUS
     Dosage: UNK UNK, UNKNOWN
     Route: 065
  12. PROPRANOLOL [Concomitant]
     Active Substance: PROPRANOLOL HYDROCHLORIDE
     Indication: HYPERTENSION
     Dosage: UNK UNK, UNKNOWN
     Route: 065
  13. TRAZODONE [Suspect]
     Active Substance: TRAZODONE HYDROCHLORIDE
     Indication: MAJOR DEPRESSION
     Dosage: 100 MG, UNKNOWN
     Route: 065
     Dates: start: 201506
  14. SULPIRIDE [Suspect]
     Active Substance: SULPIRIDE
     Indication: MAJOR DEPRESSION
     Dosage: 50 MG, UNKNOWN
     Route: 065
  15. SOLIFENACIN [Concomitant]
     Active Substance: SOLIFENACIN
     Indication: HYPERTENSION
     Dosage: UNK UNK, UNKNOWN
     Route: 065

REACTIONS (4)
  - Blood lactic acid increased [Recovered/Resolved with Sequelae]
  - Cerebellar syndrome [Recovered/Resolved with Sequelae]
  - Serotonin syndrome [Recovered/Resolved with Sequelae]
  - Hyperthermia [Unknown]

NARRATIVE: CASE EVENT DATE: 20150702
